FAERS Safety Report 18820436 (Version 6)
Quarter: 2021Q2

REPORT INFORMATION
  Report Type: Report from Study
  Country: JP (occurrence: JP)
  Receive Date: 20210202
  Receipt Date: 20210630
  Transmission Date: 20210717
  Serious: Yes (Hospitalization)
  Sender: FDA-Public Use
  Company Number: JP-SECURA BIO, INC.-2021JP000693

PATIENT
  Age: 72 Year
  Sex: Male
  Weight: 65.1 kg

DRUGS (14)
  1. ACICLOVIR [Concomitant]
     Active Substance: ACYCLOVIR
     Indication: INFECTION PROPHYLAXIS
     Dosage: 200 MG QD
     Route: 048
     Dates: start: 201807
  2. NIFEDIPINE. [Concomitant]
     Active Substance: NIFEDIPINE
     Indication: HYPERTENSION
     Dosage: 20 MG QD
     Route: 048
     Dates: start: 2005
  3. NOVORAPID [Concomitant]
     Active Substance: INSULIN ASPART
     Indication: DIABETES MELLITUS
     Dosage: 9 U BID
     Route: 058
     Dates: start: 2005
  4. IPI?145 [Suspect]
     Active Substance: DUVELISIB
     Dosage: 25 MG, BID
     Route: 048
     Dates: start: 20200804
  5. PREDONINE [Concomitant]
     Active Substance: PREDNISOLONE
     Indication: TUMOUR PAIN
     Dosage: 2.5 MG, BID
     Route: 048
     Dates: start: 20200521
  6. LANTUS [Concomitant]
     Active Substance: INSULIN GLARGINE
     Indication: DIABETES MELLITUS
     Dosage: 18 U DAILY
     Route: 058
     Dates: start: 2005
  7. BENAMBAX [Concomitant]
     Active Substance: PENTAMIDINE
     Indication: INFECTION PROPHYLAXIS
     Dosage: 1 TIME EVERY MONTH
     Dates: start: 201903
  8. FEBURIC [Concomitant]
     Active Substance: FEBUXOSTAT
     Indication: HYPERURICAEMIA
     Dosage: 10 MG, DAILY
     Route: 048
     Dates: start: 20200708
  9. IPI?145 [Suspect]
     Active Substance: DUVELISIB
     Indication: LYMPHOMA
     Dosage: 75 MG, BID
     Route: 048
     Dates: start: 20200609
  10. IPI?145 [Suspect]
     Active Substance: DUVELISIB
     Dosage: 75 MG, BID
     Route: 048
     Dates: start: 20200929, end: 20201214
  11. FLUCONAZOLE. [Concomitant]
     Active Substance: FLUCONAZOLE
     Indication: INFECTION PROPHYLAXIS
     Dosage: 100 MG, QD
     Route: 048
     Dates: start: 201807
  12. ACETAMINOPHEN. [Concomitant]
     Active Substance: ACETAMINOPHEN
     Indication: TUMOUR PAIN
     Dosage: 200 MG, TID
     Route: 048
     Dates: start: 201807
  13. CLOPIDOGREL [Concomitant]
     Active Substance: CLOPIDOGREL BISULFATE
     Indication: ANGINA PECTORIS
     Dosage: 75 MG QD
     Route: 048
     Dates: start: 201911
  14. HIRUDOID [Concomitant]
     Active Substance: GLYCOSAMINOGLYCANS
     Indication: URTICARIA
     Dosage: APPROPRIATE AMOUNT, BID
     Route: 061
     Dates: start: 20201020

REACTIONS (2)
  - Infective spondylitis [Recovered/Resolved]
  - Cardiac failure [Recovered/Resolved]

NARRATIVE: CASE EVENT DATE: 20201214
